FAERS Safety Report 7721422-7 (Version None)
Quarter: 2011Q3

REPORT INFORMATION
  Report Type: 
  Country: None (occurrence: None)
  Receive Date: 20110831
  Receipt Date: 20110825
  Transmission Date: 20111222
  Serious: Yes (Hospitalization)
  Sender: FDA-Public Use
  Company Number: JP-BAYER-201010543BYL

PATIENT
  Age: 62 Year
  Sex: Male
  Weight: 53 kg

DRUGS (32)
  1. NEXAVAR [Suspect]
     Indication: NON-SMALL CELL LUNG CANCER RECURRENT
     Dosage: 800 MG (DAILY DOSE), BID, ORAL
     Route: 048
     Dates: start: 20091118, end: 20091130
  2. SELBEX [Concomitant]
     Indication: GASTRITIS PROPHYLAXIS
     Dosage: 150 MG (DAILY DOSE), , ORAL
     Route: 048
     Dates: start: 20081127, end: 20091025
  3. ISODINE [Concomitant]
     Indication: INFECTION PROPHYLAXIS
     Route: 002
     Dates: start: 20091130, end: 20091203
  4. CLOBETASOL PROPIONATE [Concomitant]
     Indication: PALMAR-PLANTAR ERYTHRODYSAESTHESIA SYNDROME
     Route: 062
     Dates: start: 20090112, end: 20091016
  5. NEXAVAR [Suspect]
     Dosage: 400 MG (DAILY DOSE), QD, ORAL
     Route: 048
     Dates: start: 20091202, end: 20100127
  6. OXINORM [Concomitant]
     Indication: CANCER PAIN
     Dosage: 7.5 MG (DAILY DOSE), , ORAL
     Route: 048
     Dates: start: 20090709
  7. MOTILIUM [Concomitant]
     Indication: ABDOMINAL DISCOMFORT
  8. LASIX [Concomitant]
     Indication: PERICARDIAL EFFUSION
  9. OXINORM [Concomitant]
  10. SELBEX [Concomitant]
  11. CODEINE SULFATE [Concomitant]
     Indication: COUGH
     Dosage: 2 G (DAILY DOSE), , ORAL
     Route: 048
     Dates: start: 20090324, end: 20100204
  12. CODEINE SULFATE [Concomitant]
     Dosage: 6 G (DAILY DOSE), , ORAL
     Route: 048
     Dates: start: 20100205
  13. AMLODIPINE [Concomitant]
     Indication: HYPERTENSION
     Dosage: 5 MG (DAILY DOSE), , ORAL
     Route: 048
     Dates: start: 20091016, end: 20100123
  14. MOTILIUM [Concomitant]
     Indication: VOMITING
     Route: 048
     Dates: start: 20091204
  15. LOXONIN [Concomitant]
  16. MAGMITT [Concomitant]
     Indication: CONSTIPATION
     Dosage: 250MG, 750MG
     Route: 048
     Dates: start: 20090324
  17. FAMOTIDINE [Concomitant]
     Indication: ABDOMINAL DISCOMFORT
     Dosage: 40 MG (DAILY DOSE), , ORAL
     Route: 048
     Dates: start: 20091014
  18. MAGMITT [Concomitant]
  19. ISODINE [Concomitant]
  20. LASIX [Concomitant]
     Indication: PLEURAL EFFUSION
     Dosage: 40 MG (DAILY DOSE), , ORAL
     Route: 048
     Dates: start: 20091012
  21. LOXONIN [Concomitant]
     Indication: CANCER PAIN
     Dosage: 180 MG (DAILY DOSE), , ORAL
     Route: 048
     Dates: start: 20091029
  22. FENTANYL [Concomitant]
     Indication: CANCER PAIN
     Dosage: 1.4 MG (DAILY DOSE), , TRANSDERMAL
     Route: 062
     Dates: start: 20090703
  23. FENTANYL [Concomitant]
  24. LENDORMIN [Concomitant]
     Indication: INSOMNIA
     Dosage: 0.25 MG (DAILY DOSE), , ORAL
     Route: 048
     Dates: start: 20081224
  25. NERISONA [Concomitant]
  26. AMLODIPINE [Concomitant]
  27. CLOBETASOL PROPIONATE [Concomitant]
  28. MOTILIUM [Concomitant]
     Indication: NAUSEA
  29. LASIX [Concomitant]
  30. LENDORMIN [Concomitant]
  31. NERISONA [Concomitant]
     Indication: RASH
     Route: 062
     Dates: start: 20091127, end: 20091224
  32. FAMOTIDINE [Concomitant]

REACTIONS (2)
  - PERICARDIAL EFFUSION [None]
  - PLEURAL EFFUSION [None]
